FAERS Safety Report 12950385 (Version 1)
Quarter: 2016Q4

REPORT INFORMATION
  Report Type: Spontaneous
  Country: JP (occurrence: JP)
  Receive Date: 20161116
  Receipt Date: 20161116
  Transmission Date: 20170207
  Serious: Yes (Other)
  Sender: FDA-Public Use
  Company Number: JP-SA-2016SA208079

PATIENT

DRUGS (2)
  1. MYSLEE [Suspect]
     Active Substance: ZOLPIDEM TARTRATE
     Route: 065
  2. SILECE [Concomitant]
     Active Substance: FLUNITRAZEPAM
     Route: 065

REACTIONS (1)
  - Road traffic accident [Unknown]
